FAERS Safety Report 7124986-X (Version None)
Quarter: 2010Q4

REPORT INFORMATION
  Report Type: 
  Country: None (occurrence: None)
  Receive Date: 20101115
  Receipt Date: 20101029
  Transmission Date: 20110411
  Serious: Yes (Death, Hospitalization)
  Sender: FDA-Public Use
  Company Number: AUR-APL-2010-02737

PATIENT
  Age: 36 Year

DRUGS (5)
  1. METOPROLOL [Suspect]
     Dosage: ORAL
     Route: 048
  2. LAMOTRIGINE [Suspect]
     Dosage: ORAL
     Route: 048
  3. IBUPROFEN [Suspect]
     Dosage: ORAL
  4. BUPROPION ER TABLET [Suspect]
     Dosage: 300 MG, ORAL
     Route: 048
  5. ACTIVATED CHARCOAL [Suspect]

REACTIONS (4)
  - AGITATION [None]
  - APNOEA [None]
  - DYSKINESIA [None]
  - SUICIDE ATTEMPT [None]
